FAERS Safety Report 9692314 (Version 1)
Quarter: 2013Q4

REPORT INFORMATION
  Report Type: Spontaneous
  Country: GB (occurrence: GB)
  Receive Date: 20131118
  Receipt Date: 20131118
  Transmission Date: 20140711
  Serious: Yes (Other)
  Sender: FDA-Public Use
  Company Number: US-ASTRAZENECA-2013SE84433

PATIENT
  Age: 59 Year
  Sex: Male
  Weight: 103.4 kg

DRUGS (2)
  1. CANDESARTAN [Suspect]
     Indication: HYPERTENSION
     Route: 048
     Dates: start: 20101113
  2. PROPRANOLOL [Concomitant]

REACTIONS (6)
  - Headache [Not Recovered/Not Resolved]
  - Pollakiuria [Unknown]
  - Arthralgia [Not Recovered/Not Resolved]
  - Somnolence [Not Recovered/Not Resolved]
  - Myalgia [Not Recovered/Not Resolved]
  - Back pain [Unknown]
